FAERS Safety Report 7803566-4 (Version None)
Quarter: 2011Q4

REPORT INFORMATION
  Report Type: 
  Country: None (occurrence: None)
  Receive Date: 20111009
  Receipt Date: 20110926
  Transmission Date: 20120403
  Serious: Yes (Other)
  Sender: FDA-Public Use
  Company Number: GB-MYLANLABS-2011S1020102

PATIENT
  Age: 81 Year
  Sex: Female
  Weight: 55.3 kg

DRUGS (9)
  1. OLANZAPINE [Suspect]
     Indication: MAJOR DEPRESSION
     Route: 048
     Dates: start: 20110413, end: 20110731
  2. VALDOXAN [Suspect]
     Indication: MAJOR DEPRESSION
     Route: 048
     Dates: start: 20110730, end: 20110730
  3. LORAZEPAM [Concomitant]
     Indication: MAJOR DEPRESSION
     Route: 048
     Dates: start: 20101014
  4. SIMVASTATIN [Concomitant]
     Indication: HYPERLIPIDAEMIA
     Route: 048
  5. ASPIRIN [Concomitant]
     Indication: MYOCARDIAL INFARCTION
     Route: 048
  6. RAMIPRIL [Concomitant]
     Indication: ESSENTIAL HYPERTENSION
     Route: 048
  7. LEVOTHYROXINE SODIUM [Concomitant]
     Indication: HYPOTHYROIDISM
     Route: 048
  8. ZOLPIDEM [Concomitant]
     Indication: INSOMNIA
     Route: 048
     Dates: start: 20101014
  9. MIRTAZAPINE [Suspect]
     Indication: MAJOR DEPRESSION
     Route: 048
     Dates: start: 20100920

REACTIONS (4)
  - SYNCOPE [None]
  - ABDOMINAL PAIN [None]
  - HYPOTENSION [None]
  - DRUG INTERACTION [None]
